FAERS Safety Report 19007261 (Version 1)
Quarter: 2021Q1

REPORT INFORMATION
  Report Type: Spontaneous
  Country: US (occurrence: US)
  Receive Date: 20210313
  Receipt Date: 20210313
  Transmission Date: 20210420
  Serious: Yes (Hospitalization)
  Sender: FDA-Public Use
  Company Number: None

PATIENT
  Sex: Female

DRUGS (1)
  1. AIMOVIG [Suspect]
     Active Substance: ERENUMAB-AOOE
     Indication: MIGRAINE
     Dosage: OTHER FREQUENCY:EVERY 28 DAYS;?
     Route: 058
     Dates: start: 2018

REACTIONS (4)
  - Seizure [None]
  - Mental disorder [None]
  - Feeling abnormal [None]
  - Mental status changes [None]
